FAERS Safety Report 15850443 (Version 1)
Quarter: 2019Q1

REPORT INFORMATION
  Report Type: Spontaneous
  Country: US (occurrence: US)
  Receive Date: 20190121
  Receipt Date: 20190121
  Transmission Date: 20190417
  Serious: Yes (Life-Threatening, Other)
  Sender: FDA-Public Use
  Company Number: US-TEVA-2019-US-999652

PATIENT
  Sex: Male

DRUGS (3)
  1. AMIODARONE [Suspect]
     Active Substance: AMIODARONE
     Indication: ATRIAL FIBRILLATION
     Route: 065
  2. CORDARONE [Suspect]
     Active Substance: AMIODARONE HYDROCHLORIDE
     Indication: ATRIAL FIBRILLATION
     Route: 065
  3. PACERONE [Suspect]
     Active Substance: AMIODARONE HYDROCHLORIDE
     Indication: ATRIAL FIBRILLATION
     Route: 065

REACTIONS (11)
  - Cough [Unknown]
  - Product use in unapproved indication [Unknown]
  - Oedema [Unknown]
  - Fatigue [Unknown]
  - Chest pain [Unknown]
  - Pulmonary toxicity [Unknown]
  - Asthenia [Unknown]
  - Dizziness [Unknown]
  - Renal disorder [Unknown]
  - Dyspnoea [Unknown]
  - Headache [Unknown]
